FAERS Safety Report 5159639-0 (Version None)
Quarter: 2006Q4

REPORT INFORMATION
  Report Type: 
  Country: None (occurrence: None)
  Receive Date: 20061129
  Receipt Date: 20060817
  Transmission Date: 20070319
  Serious: No
  Sender: FDA-Public Use
  Company Number: US-BRISTOL-MYERS SQUIBB COMPANY-13478391

PATIENT
  Age: 67 Year
  Sex: Female
  Weight: 79 kg

DRUGS (2)
  1. AVALIDE [Suspect]
     Indication: HYPERTENSION
     Dosage: DOSING IS 300 MG/ 12.5 MG DAILY
     Route: 048
     Dates: start: 20060601, end: 20060701
  2. SYNTHROID [Concomitant]
     Dates: start: 19850101

REACTIONS (4)
  - DEAFNESS NEUROSENSORY [None]
  - HEADACHE [None]
  - PRURITUS [None]
  - TINNITUS [None]
